FAERS Safety Report 6349623-3 (Version None)
Quarter: 2009Q3

REPORT INFORMATION
  Report Type: 
  Country: None (occurrence: None)
  Receive Date: 20090911
  Receipt Date: 20090901
  Transmission Date: 20100115
  Serious: Yes (Other)
  Sender: FDA-Public Use
  Company Number: US-PFIZER INC-2009266259

PATIENT
  Sex: Female
  Weight: 129.25 kg

DRUGS (4)
  1. ZOLOFT [Suspect]
     Indication: DEPRESSION
     Route: 048
     Dates: start: 19990101
  2. ZOLOFT [Suspect]
     Indication: FIBROMYALGIA
  3. ZOLOFT [Suspect]
     Indication: INSOMNIA
  4. ZOLOFT [Suspect]
     Route: 048
     Dates: start: 20090601

REACTIONS (14)
  - ARTHRALGIA [None]
  - ARTHRITIS [None]
  - BLOOD CHOLESTEROL INCREASED [None]
  - BONE DISORDER [None]
  - DRUG INTOLERANCE [None]
  - DYSGEUSIA [None]
  - FIBROMYALGIA [None]
  - GASTRIC STAPLING [None]
  - INFLAMMATION [None]
  - ORAL DISCOMFORT [None]
  - RED BLOOD CELL SEDIMENTATION RATE INCREASED [None]
  - RETCHING [None]
  - SURGERY [None]
  - VOMITING [None]
